FAERS Safety Report 4807832-6 (Version None)
Quarter: 2005Q4

REPORT INFORMATION
  Report Type: 
  Country: None (occurrence: None)
  Receive Date: 20051020
  Receipt Date: 20051012
  Transmission Date: 20060501
  Serious: Yes (Hospitalization)
  Sender: FDA-Public Use
  Company Number: 2005117854

PATIENT
  Age: 83 Year
  Sex: Male

DRUGS (8)
  1. ZOLOFT [Suspect]
     Indication: DEPRESSION
     Dosage: 50 MG (50 MG, 1 IN 1 D), ORAL
     Route: 048
     Dates: start: 20050509, end: 20050823
  2. ALDACTONE [Suspect]
     Indication: CARDIAC FAILURE
     Dosage: 75 MG (75 MG, 1 IN 1 D), ORAL
     Route: 048
     Dates: start: 20050701
  3. FUROSEMIDE [Suspect]
     Indication: CARDIAC FAILURE
     Dosage: 80 MG, (2 IN 1 D), ORAL
     Route: 048
     Dates: start: 20050701
  4. FLUINDIONE (FLUINDIONE) [Concomitant]
  5. RAMIPRIL [Concomitant]
  6. POTASSIUM CHLORIDE [Concomitant]
  7. NICARDIPINE HCL [Concomitant]
  8. NITROGLYCERIN [Concomitant]

REACTIONS (13)
  - COAGULOPATHY [None]
  - DISORIENTATION [None]
  - DRUG INTERACTION POTENTIATION [None]
  - HYPONATRAEMIA [None]
  - INTERNATIONAL NORMALISED RATIO DECREASED [None]
  - OEDEMA [None]
  - PROTHROMBIN LEVEL INCREASED [None]
  - PULMONARY OEDEMA [None]
  - RASH [None]
  - RENAL FAILURE [None]
  - SKIN DISORDER [None]
  - WEIGHT DECREASED [None]
  - WEIGHT INCREASED [None]
